FAERS Safety Report 10190152 (Version 1)
Quarter: 2014Q2

REPORT INFORMATION
  Report Type: Spontaneous
  Country: US (occurrence: US)
  Receive Date: 20140522
  Receipt Date: 20140522
  Transmission Date: 20141212
  Serious: Yes (Other)
  Sender: FDA-Public Use
  Company Number: US-SA-2013SA112468

PATIENT
  Age: 88 Year
  Sex: Female

DRUGS (2)
  1. INFLUENZA VACCINE [Suspect]
     Indication: IMMUNISATION
     Route: 065
     Dates: start: 20131024, end: 20131024
  2. LANTUS SOLOSTAR [Suspect]
     Indication: TYPE 1 DIABETES MELLITUS
     Dosage: DOSE:40 UNIT(S)

REACTIONS (1)
  - Hypoglycaemia [Recovered/Resolved]
